FAERS Safety Report 24274956 (Version 1)
Quarter: 2024Q3

REPORT INFORMATION
  Report Type: Spontaneous
  Country: NZ (occurrence: US)
  Receive Date: 20240902
  Receipt Date: 20240902
  Transmission Date: 20241016
  Serious: No
  Sender: PFIZER
  Company Number: NZ-PFIZER INC-202400199153

PATIENT
  Age: 83 Year
  Sex: Female
  Weight: 92 kg

DRUGS (3)
  1. IBRANCE [Suspect]
     Active Substance: PALBOCICLIB
     Indication: Breast cancer metastatic
     Dosage: 100 MG, CYCLIC (FOR 21 DAYS/CYCLE)
     Route: 048
     Dates: start: 20240530, end: 20240620
  2. LETROZOLE [Concomitant]
     Active Substance: LETROZOLE
     Indication: Endocrine disorder
     Dosage: 2.5 MG, 1X/DAY
  3. ZOPICLONE [Concomitant]
     Active Substance: ZOPICLONE
     Indication: Insomnia
     Dosage: 7.5 MG, AS NEEDED (AT NIGHT)

REACTIONS (1)
  - Allergy to arthropod bite [Recovered/Resolved]

NARRATIVE: CASE EVENT DATE: 20240618
